FAERS Safety Report 5725598-2 (Version None)
Quarter: 2008Q2

REPORT INFORMATION
  Report Type: 
  Country: None (occurrence: None)
  Receive Date: 20080501
  Receipt Date: 20080425
  Transmission Date: 20081010
  Serious: Yes (Other)
  Sender: FDA-Public Use
  Company Number: US-BOEHRINGER INGELHEIM GMBH, GERMANY-2008-BP-06534BP

PATIENT
  Sex: Female

DRUGS (9)
  1. SPIRIVA [Suspect]
     Route: 065
  2. MIRALAX [Suspect]
     Indication: BOWEL MOVEMENT IRREGULARITY
     Route: 048
     Dates: start: 20080223, end: 20080227
  3. MIRALAX [Suspect]
     Indication: IRRITABLE BOWEL SYNDROME
  4. MIRALAX [Suspect]
     Indication: CONSTIPATION
  5. ADVAIR HFA [Suspect]
     Route: 065
  6. LEXAPRO [Concomitant]
     Route: 065
  7. GAS X [Concomitant]
     Route: 065
  8. SYNTHROID [Concomitant]
     Route: 065
  9. NAPROSYN [Concomitant]
     Route: 065

REACTIONS (10)
  - ABDOMINAL DISTENSION [None]
  - CONSTIPATION [None]
  - DYSPNOEA [None]
  - FLATULENCE [None]
  - GASTRIC DISORDER [None]
  - OEDEMA MOUTH [None]
  - OESOPHAGEAL DISCOMFORT [None]
  - OESOPHAGEAL OEDEMA [None]
  - STOMATITIS [None]
  - SWOLLEN TONGUE [None]
